FAERS Safety Report 8599543-9 (Version None)
Quarter: 2012Q3

REPORT INFORMATION
  Report Type: 
  Country: None (occurrence: None)
  Receive Date: 20120816
  Receipt Date: 20120813
  Transmission Date: 20120928
  Serious: Yes (Death, Hospitalization)
  Sender: FDA-Public Use
  Company Number: PHHY2012GB070576

PATIENT
  Sex: Female

DRUGS (1)
  1. DICLOFENAC SODIUM [Suspect]
     Indication: OSTEOARTHRITIS
     Dosage: 50 MG, TID
     Route: 048
     Dates: start: 20080708, end: 20110513

REACTIONS (7)
  - ABDOMINAL TENDERNESS [None]
  - COLITIS ISCHAEMIC [None]
  - LARGE INTESTINE PERFORATION [None]
  - ABDOMINAL PAIN [None]
  - CHRONIC OBSTRUCTIVE PULMONARY DISEASE [None]
  - ABDOMINAL RIGIDITY [None]
  - DIARRHOEA HAEMORRHAGIC [None]
